FAERS Safety Report 8788909 (Version 2)
Quarter: 2013Q4

REPORT INFORMATION
  Report Type: Spontaneous
  Country: US (occurrence: US)
  Receive Date: 20120915
  Receipt Date: 20131101
  Transmission Date: 20140711
  Serious: No
  Sender: FDA-Public Use
  Company Number: US-009507513-1208USA005952

PATIENT
  Age: 52 Year
  Sex: Female

DRUGS (4)
  1. VICTRELIS [Suspect]
     Indication: CHRONIC HEPATITIS C
     Dosage: 800 MG, TID (VICTRELIS 200MG CAPSULE)
     Route: 048
     Dates: start: 20120626
  2. LORAZEPAM [Concomitant]
     Dosage: 2 MG, UNK
  3. TUMS [Concomitant]
  4. ASPIRIN [Concomitant]
     Dosage: 81 MG, UNK

REACTIONS (1)
  - Nausea [Not Recovered/Not Resolved]
